FAERS Safety Report 15002138 (Version 1)
Quarter: 2018Q2

REPORT INFORMATION
  Report Type: Spontaneous
  Country: US (occurrence: US)
  Receive Date: 20180612
  Receipt Date: 20180612
  Transmission Date: 20180711
  Serious: No
  Sender: FDA-Public Use
  Company Number: US-SEPTODONT-201804597

PATIENT
  Age: 63 Year
  Sex: Male

DRUGS (1)
  1. ARTICAINE [Suspect]
     Active Substance: ARTICAINE
     Indication: LOCAL ANAESTHESIA

REACTIONS (3)
  - Salivary hypersecretion [Not Recovered/Not Resolved]
  - Paraesthesia oral [Not Recovered/Not Resolved]
  - Ageusia [Not Recovered/Not Resolved]
